FAERS Safety Report 20399142 (Version 2)
Quarter: 2022Q1

REPORT INFORMATION
  Report Type: Spontaneous
  Country: US (occurrence: US)
  Receive Date: 20220131
  Receipt Date: 20220201
  Transmission Date: 20220424
  Serious: No
  Sender: FDA-Public Use
  Company Number: US-ABBVIE-21K-163-3990729-00

PATIENT
  Age: 42 Year
  Sex: Female
  Weight: 76.726 kg

DRUGS (7)
  1. HUMIRA [Suspect]
     Active Substance: ADALIMUMAB
     Indication: Uveitis
     Route: 058
     Dates: start: 2019
  2. VALSARTAN [Concomitant]
     Active Substance: VALSARTAN
     Indication: Hypertension
  3. FOLIC ACID [Concomitant]
     Active Substance: FOLIC ACID
     Indication: Vitamin supplementation
  4. BUPROPION [Concomitant]
     Active Substance: BUPROPION
     Indication: Anxiety
  5. BUPROPION [Concomitant]
     Active Substance: BUPROPION
     Indication: Depression
  6. PREDNISONE [Concomitant]
     Active Substance: PREDNISONE
     Indication: Uveitis
  7. TRAZODONE [Concomitant]
     Active Substance: TRAZODONE HYDROCHLORIDE
     Indication: Sleep disorder

REACTIONS (3)
  - Injury associated with device [Recovered/Resolved]
  - Wrong technique in product usage process [Recovered/Resolved]
  - Injection site haemorrhage [Recovered/Resolved]

NARRATIVE: CASE EVENT DATE: 20210712
